FAERS Safety Report 5343595-6 (Version None)
Quarter: 2007Q2

REPORT INFORMATION
  Report Type: 
  Country: None (occurrence: None)
  Receive Date: 20070531
  Receipt Date: 20070524
  Transmission Date: 20071010
  Serious: Yes (Death)
  Sender: FDA-Public Use
  Company Number: WAES 0612GBR00096

PATIENT
  Age: 71 Year
  Sex: Male

DRUGS (8)
  1. CLINORIL [Suspect]
     Indication: CHEMOTHERAPY
     Dosage: 800 MG/DAILY PO
     Route: 048
     Dates: start: 20030626, end: 20030626
  2. CLINORIL [Suspect]
     Indication: NEOPLASM MALIGNANT
     Dosage: 800 MG/DAILY PO
     Route: 048
     Dates: start: 20030626, end: 20030626
  3. EPIRUBICIN [Suspect]
     Indication: CHEMOTHERAPY
     Dosage: 126 MG/M2[2]/1X IV
     Route: 042
     Dates: start: 20030626, end: 20030626
  4. EPIRUBICIN [Suspect]
     Indication: NEOPLASM MALIGNANT
     Dosage: 126 MG/M2[2]/1X IV
     Route: 042
     Dates: start: 20030626, end: 20030626
  5. DEXAMETHASONE 0.5MG TAB [Concomitant]
  6. GRANISETRON [Concomitant]
  7. MEGESTROL ACETATE [Concomitant]
  8. OMEPRAZOLE [Concomitant]

REACTIONS (1)
  - HAEMOPTYSIS [None]
